FAERS Safety Report 10077643 (Version 1)
Quarter: 2014Q2

REPORT INFORMATION
  Report Type: Spontaneous
  Country: US (occurrence: US)
  Receive Date: 20140414
  Receipt Date: 20140414
  Transmission Date: 20141212
  Serious: No
  Sender: FDA-Public Use
  Company Number: US-BANPHARM-20142052

PATIENT
  Age: 17 Year
  Sex: Male
  Weight: 120.18 kg

DRUGS (1)
  1. NAPROXEN SODIUM 220 MG [Suspect]
     Indication: HEADACHE
     Dosage: 660 MG, ONCE,
     Route: 048
     Dates: start: 20140114, end: 20140114

REACTIONS (2)
  - Drug ineffective [Unknown]
  - Incorrect dose administered [Unknown]
